FAERS Safety Report 5088122-6 (Version None)
Quarter: 2006Q3

REPORT INFORMATION
  Report Type: 
  Country: None (occurrence: None)
  Receive Date: 20060727
  Receipt Date: 20060403
  Transmission Date: 20061208
  Serious: Yes (Other)
  Sender: FDA-Public Use
  Company Number: 2006025038

PATIENT
  Age: 29 Year
  Sex: Female
  Weight: 90.7194 kg

DRUGS (4)
  1. LYRICA [Suspect]
     Indication: NEURALGIA
     Dosage: 200 MG (1 D)
     Route: 065
     Dates: start: 20060101
  2. PREMARIN [Concomitant]
  3. COZAAR [Concomitant]
  4. LORTAB (HYDROCODONE BITARTARATE, PARACETAMOL) [Concomitant]

REACTIONS (6)
  - ANXIETY [None]
  - ASTHENIA [None]
  - CONFUSIONAL STATE [None]
  - DYSPHEMIA [None]
  - HEART RATE INCREASED [None]
  - TREMOR [None]
